FAERS Safety Report 21300500 (Version 2)
Quarter: 2022Q4

REPORT INFORMATION
  Report Type: Spontaneous
  Country: BE (occurrence: BE)
  Receive Date: 20220907
  Receipt Date: 20221114
  Transmission Date: 20230112
  Serious: Yes (Other)
  Sender: FDA-Public Use
  Company Number: BE-KRKA-BE2022K10298LIT

PATIENT
  Age: 52 Year
  Sex: Male

DRUGS (1)
  1. OLMESARTAN [Suspect]
     Active Substance: OLMESARTAN
     Indication: Hypertension
     Dosage: 40 MILLIGRAM, ONCE A DAY
     Route: 065

REACTIONS (7)
  - Gastrointestinal disorder [Recovered/Resolved]
  - Cutaneous vasculitis [Recovered/Resolved]
  - Fatigue [Unknown]
  - Weight decreased [Unknown]
  - Diarrhoea [Unknown]
  - Purpura [Recovered/Resolved]
  - Burning sensation [Recovered/Resolved]
